FAERS Safety Report 16973137 (Version 1)
Quarter: 2019Q4

REPORT INFORMATION
  Report Type: Spontaneous
  Country: FR (occurrence: FR)
  Receive Date: 20191030
  Receipt Date: 20191030
  Transmission Date: 20200122
  Serious: Yes (Life-Threatening)
  Sender: FDA-Public Use
  Company Number: FR-ROCHE-2444055

PATIENT
  Age: 1 Day
  Sex: Male
  Weight: 2.3 kg

DRUGS (10)
  1. RIVOTRIL [Suspect]
     Active Substance: CLONAZEPAM
     Indication: PRODUCT USED FOR UNKNOWN INDICATION
     Dosage: 3 GTT DROPS, QD
     Route: 064
     Dates: end: 20100109
  2. KARDEGIC [Concomitant]
     Active Substance: ASPIRIN DL-LYSINE
     Dosage: UNK
     Route: 064
     Dates: end: 20100109
  3. VASTAREL [Concomitant]
     Active Substance: TRIMETAZIDINE DIHYDROCHLORIDE
     Dosage: UNK
     Route: 064
     Dates: end: 20100109
  4. SERESTA [Suspect]
     Active Substance: OXAZEPAM
     Indication: PRODUCT USED FOR UNKNOWN INDICATION
     Dosage: 25 MILLIGRAM, QD
     Route: 064
     Dates: end: 201001
  5. ESBERIVEN FORT [Concomitant]
     Active Substance: MELILOTUS OFFICINALIS TOP\RUTIN
     Dosage: UNK UNK, BID
     Route: 064
     Dates: end: 20100109
  6. NUCTALON [Suspect]
     Active Substance: ESTAZOLAM
     Indication: PRODUCT USED FOR UNKNOWN INDICATION
     Dosage: 1 MILLIGRAM, QD
     Route: 064
     Dates: end: 20100109
  7. IKARAN [Concomitant]
     Active Substance: DIHYDROERGOTAMINE MESYLATE
     Indication: MIGRAINE
     Dosage: UNK UNK, BID
     Route: 064
     Dates: end: 20100109
  8. EFFEXOR [Suspect]
     Active Substance: VENLAFAXINE HYDROCHLORIDE
     Indication: PRODUCT USED FOR UNKNOWN INDICATION
     Dosage: 187.5 MILLIGRAM, QD
     Route: 064
     Dates: end: 20100109
  9. NOCERTONE [Concomitant]
     Active Substance: OXETORONE
     Indication: PRODUCT USED FOR UNKNOWN INDICATION
     Dosage: UNK
     Route: 064
     Dates: end: 20100109
  10. PRAXINOR [CAFEDRINE HYDROCHLORIDE;THEODRENALINE HYDROCHLORIDE] [Concomitant]
     Dosage: UNK UNK, BID
     Route: 064
     Dates: end: 20100109

REACTIONS (5)
  - Hypotonia neonatal [Recovered/Resolved]
  - Infantile apnoea [Recovered/Resolved]
  - Apparent death [Recovered/Resolved]
  - Withdrawal syndrome [Recovered/Resolved]
  - Foetal exposure during pregnancy [Unknown]

NARRATIVE: CASE EVENT DATE: 20100109
